FAERS Safety Report 11340715 (Version 3)
Quarter: 2016Q1

REPORT INFORMATION
  Report Type: Report from Study
  Country: NL (occurrence: NL)
  Receive Date: 20150805
  Receipt Date: 20160125
  Transmission Date: 20160525
  Serious: Yes (Hospitalization)
  Sender: FDA-Public Use
  Company Number: NL-AMGEN-NLDSL2015077255

PATIENT
  Age: 70 Year
  Sex: Female

DRUGS (1)
  1. XGEVA [Suspect]
     Active Substance: DENOSUMAB
     Indication: PROPHYLAXIS
     Dosage: 1.70 ML (120MG), Q4WK
     Route: 058

REACTIONS (3)
  - Pyrexia [Unknown]
  - Sense of oppression [Unknown]
  - Pruritus [Unknown]

NARRATIVE: CASE EVENT DATE: 20150827
